FAERS Safety Report 4647144-7 (Version None)
Quarter: 2005Q2

REPORT INFORMATION
  Report Type: 
  Country: None (occurrence: None)
  Receive Date: 20050428
  Receipt Date: 20050419
  Transmission Date: 20051028
  Serious: Yes (Other)
  Sender: FDA-Public Use
  Company Number: 200511381FR

PATIENT
  Age: 63 Year
  Sex: Female
  Weight: 59 kg

DRUGS (2)
  1. TAXOTERE [Suspect]
     Indication: BREAST CANCER
     Route: 042
     Dates: start: 20050329, end: 20050329
  2. GRANOCYTE ^RHONE-POULENC^ [Concomitant]
     Route: 058
     Dates: start: 20050119, end: 20050407

REACTIONS (2)
  - ERYTHEMA [None]
  - PHOTOSENSITIVITY REACTION [None]
